FAERS Safety Report 5023812-2 (Version None)
Quarter: 2006Q2

REPORT INFORMATION
  Report Type: 
  Country: None (occurrence: None)
  Receive Date: 20060606
  Receipt Date: 20060523
  Transmission Date: 20061013
  Serious: Yes (Hospitalization)
  Sender: FDA-Public Use
  Company Number: DEWYE646323MAY06

PATIENT
  Age: 46 Year
  Sex: Female

DRUGS (3)
  1. VENLAFAXINE HCL [Suspect]
     Dosage: 75 MG PER DAY ORAL; SEE IMAGE
     Route: 048
     Dates: start: 20060520, end: 20060521
  2. VENLAFAXINE HCL [Suspect]
     Dosage: 75 MG PER DAY ORAL; SEE IMAGE
     Route: 048
     Dates: start: 20060522, end: 20060522
  3. JATROSOM [Suspect]
     Dosage: 10 MG PER DAY ORAL
     Route: 048
     Dates: start: 20060505, end: 20060519

REACTIONS (1)
  - MEDICATION ERROR [None]
